FAERS Safety Report 5679704-9 (Version None)
Quarter: 2008Q1

REPORT INFORMATION
  Report Type: 
  Country: None (occurrence: None)
  Receive Date: 20080321
  Receipt Date: 20080310
  Transmission Date: 20080703
  Serious: Yes (Other)
  Sender: FDA-Public Use
  Company Number: 2008S1004076

PATIENT
  Age: 27 Year
  Sex: Female

DRUGS (2)
  1. ISOTRETINOIN [Suspect]
     Indication: ACNE
     Dosage: 20 MG; DAILY ORAL, 20 MG; ORAL; DAILY
     Route: 048
     Dates: start: 20070601, end: 20080121
  2. ISOTRETINOIN [Suspect]
     Indication: ACNE
     Dosage: 20 MG; DAILY ORAL, 20 MG; ORAL; DAILY
     Route: 048
     Dates: start: 20070601, end: 20080121

REACTIONS (2)
  - DRUG EXPOSURE DURING PREGNANCY [None]
  - PREGNANCY [None]
